FAERS Safety Report 8428532-X (Version None)
Quarter: 2012Q2

REPORT INFORMATION
  Report Type: 
  Country: None (occurrence: None)
  Receive Date: 20120612
  Receipt Date: 20120601
  Transmission Date: 20120825
  Serious: Yes (Life-Threatening, Other)
  Sender: FDA-Public Use
  Company Number: JP-BRISTOL-MYERS SQUIBB COMPANY-16567737

PATIENT
  Age: 68 Year
  Sex: Female

DRUGS (18)
  1. LIPIDIL [Concomitant]
  2. LAC-B [Concomitant]
  3. POLITOSE [Concomitant]
  4. LIVALO [Concomitant]
  5. MUCOSTA [Concomitant]
  6. PLAVIX [Concomitant]
  7. LEVOFLOXACIN [Concomitant]
  8. BASEN [Concomitant]
  9. BUFFERIN [Concomitant]
  10. NEXIUM [Concomitant]
  11. BERBERINE [Concomitant]
     Dosage: TAB
  12. METFORMIN HCL [Suspect]
     Indication: DIABETES MELLITUS
     Dosage: 27AUG09-29NOV09 95DYS 250MG 2IN D 30NOV09-22APR12 875DYS 250MG 3IN D 26APR12-ONG 500MG
     Route: 048
     Dates: start: 20090827
  13. ADALAT CC [Concomitant]
  14. AMARYL [Concomitant]
     Dosage: 6MG,3MG,2MG
     Route: 048
  15. OLMESARTAN MEDOXOMIL [Concomitant]
  16. INDAPAMIDE [Concomitant]
  17. ZETIA [Concomitant]
  18. MARZULENE-S [Concomitant]

REACTIONS (2)
  - DIARRHOEA [None]
  - HYPOGLYCAEMIA [None]
